FAERS Safety Report 23902858 (Version 2)
Quarter: 2025Q4

REPORT INFORMATION
  Report Type: Spontaneous
  Country: US (occurrence: US)
  Receive Date: 20240527
  Receipt Date: 20251001
  Transmission Date: 20260117
  Serious: Yes (Hospitalization)
  Sender: APOTEX
  Company Number: US-APOTEX-2024AP006133

PATIENT
  Age: 62 Year
  Sex: Female

DRUGS (1)
  1. LITHIUM [Suspect]
     Active Substance: LITHIUM
     Indication: Bipolar disorder
     Dosage: 300 MILLIGRAM, BID
     Route: 065
     Dates: start: 2010

REACTIONS (3)
  - Catatonia [Recovered/Resolved]
  - Hyperparathyroidism [Recovering/Resolving]
  - Hypercalcaemia [Recovered/Resolved]

NARRATIVE: CASE EVENT DATE: 20200101
